FAERS Safety Report 9560079 (Version 1)
Quarter: 2013Q3

REPORT INFORMATION
  Report Type: Spontaneous
  Country: US (occurrence: US)
  Receive Date: 20130927
  Receipt Date: 20130927
  Transmission Date: 20140515
  Serious: No
  Sender: FDA-Public Use
  Company Number: US-PFIZER INC-2013276272

PATIENT
  Age: 51 Year
  Sex: Female
  Weight: 108.84 kg

DRUGS (2)
  1. LYRICA [Suspect]
     Indication: NEURALGIA
     Dosage: 75 MG, 2X/DAY
     Route: 048
     Dates: start: 20130923
  2. LIDODERM [Concomitant]
     Indication: BACK DISORDER
     Dosage: UNK

REACTIONS (1)
  - Somnolence [Not Recovered/Not Resolved]
